FAERS Safety Report 6707106-2 (Version None)
Quarter: 2010Q2

REPORT INFORMATION
  Report Type: 
  Country: None (occurrence: None)
  Receive Date: 20100503
  Receipt Date: 20100429
  Transmission Date: 20101027
  Serious: Yes (Death, Hospitalization, Disabling, Other)
  Sender: FDA-Public Use
  Company Number: A0857211A

PATIENT
  Age: 53 Year
  Sex: Male

DRUGS (2)
  1. LAMICTAL [Suspect]
     Dosage: 200MG PER DAY
     Route: 065
  2. AMLODIPINE [Concomitant]

REACTIONS (5)
  - BACK PAIN [None]
  - DEATH [None]
  - DRUG ADMINISTRATION ERROR [None]
  - MENTAL DISORDER [None]
  - RASH GENERALISED [None]
